FAERS Safety Report 9183518 (Version 1)
Quarter: 2013Q1

REPORT INFORMATION
  Report Type: Spontaneous
  Country: US (occurrence: US)
  Receive Date: 20130322
  Receipt Date: 20130322
  Transmission Date: 20140127
  Serious: Yes (Hospitalization, Other)
  Sender: FDA-Public Use
  Company Number: US-BRISTOL-MYERS SQUIBB COMPANY-16441222

PATIENT
  Sex: Female

DRUGS (3)
  1. ERBITUX [Suspect]
     Indication: COLORECTAL CANCER
  2. BENADRYL [Concomitant]
     Indication: PREMEDICATION
  3. ZOMETA [Concomitant]
     Indication: PREMEDICATION

REACTIONS (1)
  - Infusion related reaction [Unknown]
